FAERS Safety Report 19031357 (Version 1)
Quarter: 2021Q1

REPORT INFORMATION
  Report Type: Spontaneous
  Country: US (occurrence: US)
  Receive Date: 20210319
  Receipt Date: 20210319
  Transmission Date: 20210420
  Serious: Yes (Hospitalization, Other)
  Sender: FDA-Public Use
  Company Number: US-FRESENIUS KABI-FK202102613

PATIENT
  Age: 48 Year
  Sex: Male

DRUGS (3)
  1. FLUMAZENIL (MANUFACTURER UNKNOWN) [Suspect]
     Active Substance: FLUMAZENIL
     Indication: INTENTIONAL OVERDOSE
     Route: 065
  2. NALOXONE [Suspect]
     Active Substance: NALOXONE
     Route: 065
  3. NALOXONE [Suspect]
     Active Substance: NALOXONE
     Indication: INTENTIONAL OVERDOSE
     Route: 065

REACTIONS (2)
  - Respiratory depression [Recovered/Resolved]
  - Depressed level of consciousness [Recovered/Resolved]
